FAERS Safety Report 5507868-6 (Version None)
Quarter: 2007Q4

REPORT INFORMATION
  Report Type: 
  Country: None (occurrence: None)
  Receive Date: 20071106
  Receipt Date: 20071031
  Transmission Date: 20080405
  Serious: Yes (Other)
  Sender: FDA-Public Use
  Company Number: PHEH2006US08961

PATIENT
  Age: 46 Year
  Sex: Female
  Weight: 75.736 kg

DRUGS (6)
  1. AREDIA [Suspect]
     Dosage: 90 MG, UNK
     Dates: start: 19991001, end: 20020410
  2. ZOMETA [Suspect]
     Dosage: 4 MG, Q28 DAYS
     Dates: start: 20020508, end: 20041001
  3. VINCRISTINE [Concomitant]
     Indication: MULTIPLE MYELOMA
     Dates: start: 19990101, end: 20000101
  4. ADRIAMYCIN PFS [Concomitant]
     Dosage: UNK, UNK
     Route: 042
     Dates: start: 19990101, end: 20000101
  5. DEXAMETHASONE [Concomitant]
     Indication: MULTIPLE MYELOMA
     Dosage: UNK, UNK
     Route: 042
     Dates: start: 19990101, end: 20000101
  6. CYTOXAN [Concomitant]
     Indication: MULTIPLE MYELOMA
     Route: 042
     Dates: start: 20000401, end: 20000401

REACTIONS (18)
  - ABSCESS [None]
  - ANXIETY [None]
  - ARTHRALGIA [None]
  - BONE CYST [None]
  - BONE DISORDER [None]
  - BONE PAIN [None]
  - GINGIVAL PAIN [None]
  - GINGIVITIS [None]
  - INFLUENZA LIKE ILLNESS [None]
  - INJURY [None]
  - MASTICATION DISORDER [None]
  - MYALGIA [None]
  - ORAL DISCOMFORT [None]
  - ORAL SURGERY [None]
  - OSTEONECROSIS [None]
  - PAIN [None]
  - STOMATITIS [None]
  - TOOTH FRACTURE [None]
